FAERS Safety Report 15398110 (Version 2)
Quarter: 2018Q3

REPORT INFORMATION
  Report Type: Spontaneous
  Country: GB (occurrence: GB)
  Receive Date: 20180918
  Receipt Date: 20180919
  Transmission Date: 20181010
  Serious: Yes (Death, Hospitalization, Other)
  Sender: FDA-Public Use
  Company Number: GB-PFIZER INC-2018215942

PATIENT
  Age: 46 Year
  Sex: Male

DRUGS (3)
  1. FILGRASTIM [Suspect]
     Active Substance: FILGRASTIM
     Dosage: 30 MIU, QW
  2. FILGRASTIM [Suspect]
     Active Substance: FILGRASTIM
     Dosage: 60 MIU, QW
     Dates: start: 20170110
  3. CLOZARIL [Suspect]
     Active Substance: CLOZAPINE
     Indication: SCHIZOPHRENIA
     Dosage: UNK
     Route: 048
     Dates: start: 20130410

REACTIONS (9)
  - Decreased appetite [Unknown]
  - Acute myocardial infarction [Fatal]
  - Pneumonia [Recovering/Resolving]
  - Unresponsive to stimuli [Unknown]
  - Neutrophilia [Unknown]
  - Blood test abnormal [Unknown]
  - Empyema [Recovering/Resolving]
  - Pleural effusion [Recovering/Resolving]
  - Diarrhoea [Unknown]

NARRATIVE: CASE EVENT DATE: 20091227
